FAERS Safety Report 23782924 (Version 1)
Quarter: 2024Q2

REPORT INFORMATION
  Report Type: Spontaneous
  Country: US (occurrence: US)
  Receive Date: 20240425
  Receipt Date: 20240425
  Transmission Date: 20240716
  Serious: No
  Sender: FDA-Public Use
  Company Number: US-NOVEN PHARMACEUTICALS, INC.-2023-NOV-US001390

PATIENT
  Sex: Male
  Weight: 29.478 kg

DRUGS (6)
  1. METHYLPHENIDATE [Suspect]
     Active Substance: METHYLPHENIDATE
     Indication: Attention deficit hyperactivity disorder
     Dosage: 30 MG (USED TWO 15MG PATCH), UNKNOWN
     Route: 062
  2. METHYLPHENIDATE [Suspect]
     Active Substance: METHYLPHENIDATE
     Dosage: 15 MG, UNKNOWN
     Route: 062
  3. WELLBUTRIN [Concomitant]
     Active Substance: BUPROPION HYDROCHLORIDE
     Indication: Oppositional defiant disorder
     Dosage: UNKNOWN
     Route: 065
  4. WELLBUTRIN [Concomitant]
     Active Substance: BUPROPION HYDROCHLORIDE
     Indication: Post-traumatic stress disorder
  5. WELLBUTRIN [Concomitant]
     Active Substance: BUPROPION HYDROCHLORIDE
     Indication: Anger
  6. WELLBUTRIN [Concomitant]
     Active Substance: BUPROPION HYDROCHLORIDE
     Indication: Anxiety

REACTIONS (2)
  - Application site erythema [Recovered/Resolved]
  - Application site pain [Recovered/Resolved]
